FAERS Safety Report 6208543-5 (Version None)
Quarter: 2009Q2

REPORT INFORMATION
  Report Type: 
  Country: None (occurrence: None)
  Receive Date: 20090529
  Receipt Date: 20090525
  Transmission Date: 20091009
  Serious: Yes (Hospitalization)
  Sender: FDA-Public Use
  Company Number: NO-ASTRAZENECA-2009SE01931

PATIENT
  Age: 36 Year
  Sex: Female

DRUGS (2)
  1. BUPIVACAINE [Suspect]
     Indication: LOCAL ANAESTHESIA
     Route: 050
     Dates: start: 20081212, end: 20081212
  2. XYLOCAINE [Suspect]
     Indication: LOCAL ANAESTHESIA
     Dosage: CUMULATIVE DOSE UNTIL ONSET OF FIRST ADVERSE REACTION 1200  MG
     Route: 050
     Dates: start: 20081212, end: 20081212

REACTIONS (3)
  - CONFUSIONAL STATE [None]
  - OVERDOSE [None]
  - RESTLESSNESS [None]
